FAERS Safety Report 9395897 (Version 3)
Quarter: 2013Q4

REPORT INFORMATION
  Report Type: Spontaneous
  Country: US (occurrence: US)
  Receive Date: 20130711
  Receipt Date: 20131101
  Transmission Date: 20140711
  Serious: Yes (Hospitalization)
  Sender: FDA-Public Use
  Company Number: US-GLAXOSMITHKLINE-B0907046A

PATIENT
  Age: 50 Year
  Sex: Female

DRUGS (1)
  1. AVANDIA [Suspect]
     Indication: DIABETES MELLITUS
     Route: 048
     Dates: start: 20050411

REACTIONS (8)
  - Cardiac disorder [Unknown]
  - Coronary artery disease [Unknown]
  - Angina unstable [Unknown]
  - Local swelling [Unknown]
  - Fatigue [Unknown]
  - Heart rate decreased [Unknown]
  - Heart rate increased [Unknown]
  - Hypersomnia [Unknown]
